FAERS Safety Report 12454644 (Version 1)
Quarter: 2016Q2

REPORT INFORMATION
  Report Type: Spontaneous
  Country: US (occurrence: None)
  Receive Date: 20160609
  Receipt Date: 20160609
  Transmission Date: 20160815
  Serious: No
  Sender: FDA-Public Use
  Company Number: None

PATIENT
  Age: 6 Year
  Sex: Male

DRUGS (1)
  1. METHYLPHENIDATE. [Suspect]
     Active Substance: METHYLPHENIDATE

REACTIONS (3)
  - Incorrect dose administered [None]
  - Drug dispensing error [None]
  - Product label confusion [None]

NARRATIVE: CASE EVENT DATE: 20160608
